FAERS Safety Report 6717631-6 (Version None)
Quarter: 2010Q2

REPORT INFORMATION
  Report Type: 
  Country: None (occurrence: None)
  Receive Date: 20100507
  Receipt Date: 20100507
  Transmission Date: 20101027
  Serious: No
  Sender: FDA-Public Use
  Company Number: None

PATIENT
  Sex: Male
  Weight: 77.1115 kg

DRUGS (2)
  1. RIBAVIRIN [Suspect]
     Indication: HEPATITIS C
     Dosage: 3 CAPSULES AM + PM PO
     Route: 048
     Dates: start: 20090701, end: 20091002
  2. PEG-INTRON [Suspect]
     Indication: HEPATITIS C
     Dosage: 120MCG ONCE WEEKLY SQ
     Route: 058
     Dates: start: 20090701, end: 20091002

REACTIONS (7)
  - DIZZINESS [None]
  - DRUG INEFFECTIVE [None]
  - GAIT DISTURBANCE [None]
  - LIP DRY [None]
  - LIP PAIN [None]
  - LIP SWELLING [None]
  - SECRETION DISCHARGE [None]
